FAERS Safety Report 14673129 (Version 2)
Quarter: 2018Q2

REPORT INFORMATION
  Report Type: Spontaneous
  Country: IT (occurrence: IT)
  Receive Date: 20180323
  Receipt Date: 20180402
  Transmission Date: 20180711
  Serious: Yes (Other)
  Sender: FDA-Public Use
  Company Number: PHHY2018IT050918

PATIENT
  Age: 50 Year
  Sex: Male

DRUGS (4)
  1. ALPRAZIG [Concomitant]
     Indication: PRODUCT USED FOR UNKNOWN INDICATION
     Dosage: 1 DF, UNK
     Route: 048
  2. VASORETIC [Concomitant]
     Active Substance: ENALAPRIL MALEATE\HYDROCHLOROTHIAZIDE
     Indication: PRODUCT USED FOR UNKNOWN INDICATION
     Dosage: 1 MG, UNK
     Route: 048
  3. MUSCORIL [Suspect]
     Active Substance: THIOCOLCHICOSIDE
     Indication: BACK PAIN
     Dosage: 1 MG, UNK
     Route: 030
     Dates: start: 20180115, end: 20180115
  4. VOLTAREN [Suspect]
     Active Substance: DICLOFENAC SODIUM
     Indication: BACK PAIN
     Dosage: 1 MG, UNK
     Route: 030
     Dates: start: 20180115, end: 20180115

REACTIONS (2)
  - Pruritus generalised [Recovered/Resolved]
  - Urticaria [Recovered/Resolved]

NARRATIVE: CASE EVENT DATE: 20180115
